FAERS Safety Report 16235870 (Version 1)
Quarter: 2019Q2

REPORT INFORMATION
  Report Type: Report from Study
  Country: None (occurrence: RO)
  Receive Date: 20190424
  Receipt Date: 20190424
  Transmission Date: 20190711
  Serious: Yes (Hospitalization, Other)
  Sender: FDA-Public Use
  Company Number: RO-ABBVIE-19S-135-2745905-00

PATIENT
  Age: 71 Year
  Sex: Male

DRUGS (1)
  1. DUODOPA [Suspect]
     Active Substance: CARBIDOPA\LEVODOPA
     Indication: PARKINSON^S DISEASE
     Dosage: DM=8.00?DC=5.80?ED=3.30?NRED=2;?DMN=0.00?DCN=0.00?EDN=0.00?NREDN=0
     Route: 050
     Dates: start: 20170301, end: 20190419

REACTIONS (8)
  - Cerebral atrophy [Not Recovered/Not Resolved]
  - Embedded device [Recovering/Resolving]
  - Stoma site irritation [Recovering/Resolving]
  - Lacunar infarction [Not Recovered/Not Resolved]
  - Cerebral microangiopathy [Not Recovered/Not Resolved]
  - Depression [Not Recovered/Not Resolved]
  - Stoma site discharge [Recovering/Resolving]
  - Osteoarthritis [Not Recovered/Not Resolved]

NARRATIVE: CASE EVENT DATE: 20190412
